FAERS Safety Report 6230278-3 (Version None)
Quarter: 2009Q2

REPORT INFORMATION
  Report Type: 
  Country: None (occurrence: None)
  Receive Date: 20090615
  Receipt Date: 20090603
  Transmission Date: 20091009
  Serious: Yes (Life-Threatening)
  Sender: FDA-Public Use
  Company Number: GB-BAUSCH-2009BL002809

PATIENT
  Age: 56 Year
  Sex: Female

DRUGS (2)
  1. ATROPINE [Suspect]
     Indication: DRUG USE FOR UNKNOWN INDICATION
  2. TAZOCIN [Suspect]
     Indication: PROPHYLAXIS
     Route: 042
     Dates: start: 20090330, end: 20090330

REACTIONS (4)
  - ANAPHYLACTIC REACTION [None]
  - BRADYCARDIA [None]
  - CARDIO-RESPIRATORY ARREST [None]
  - RASH GENERALISED [None]
